FAERS Safety Report 6470386-5 (Version None)
Quarter: 2009Q4

REPORT INFORMATION
  Report Type: 
  Country: None (occurrence: None)
  Receive Date: 20091203
  Receipt Date: 20091124
  Transmission Date: 20100525
  Serious: Yes (Hospitalization)
  Sender: FDA-Public Use
  Company Number: ES-PFIZER INC-2006097820

PATIENT
  Age: 69 Year
  Sex: Female

DRUGS (5)
  1. SUNITINIB MALATE [Suspect]
     Indication: METASTATIC RENAL CELL CARCINOMA
     Dosage: 50 MG, 1X/DAY
     Route: 048
     Dates: start: 20060620, end: 20060709
  2. OMEPRAZOLE [Concomitant]
     Route: 048
  3. SEGURIL [Concomitant]
     Route: 048
  4. BOI K [Concomitant]
     Route: 048
  5. PARACETAMOL [Concomitant]
     Route: 048

REACTIONS (2)
  - ASTHENIA [None]
  - PETECHIAE [None]
